FAERS Safety Report 7751811-6 (Version None)
Quarter: 2011Q3

REPORT INFORMATION
  Report Type: 
  Country: None (occurrence: None)
  Receive Date: 20110915
  Receipt Date: 20110908
  Transmission Date: 20111222
  Serious: Yes (Other)
  Sender: FDA-Public Use
  Company Number: IT-SHIRE-SPV1-2011-01178

PATIENT
  Age: 80 Year
  Sex: Female

DRUGS (2)
  1. MESALAMINE [Suspect]
     Indication: COLITIS
  2. MESALAMINE [Suspect]
     Indication: ABDOMINAL PAIN
     Dosage: 1200 MG, UNK
     Route: 048

REACTIONS (2)
  - OFF LABEL USE [None]
  - CEREBRAL ISCHAEMIA [None]
